FAERS Safety Report 6807445-0 (Version None)
Quarter: 2010Q2

REPORT INFORMATION
  Report Type: 
  Country: None (occurrence: None)
  Receive Date: 20100629
  Receipt Date: 20080919
  Transmission Date: 20101027
  Serious: No
  Sender: FDA-Public Use
  Company Number: US-PFIZER INC-2008079252

PATIENT
  Sex: Male
  Weight: 111.36 kg

DRUGS (2)
  1. VIAGRA [Suspect]
     Indication: ERECTILE DYSFUNCTION
     Route: 048
     Dates: start: 20080801, end: 20080801
  2. ANALGESICS [Concomitant]

REACTIONS (5)
  - CONJUNCTIVITIS INFECTIVE [None]
  - EYE INFECTION [None]
  - INTENTIONAL DRUG MISUSE [None]
  - VISION BLURRED [None]
  - VISUAL ACUITY REDUCED [None]
